FAERS Safety Report 7949063-7 (Version None)
Quarter: 2011Q4

REPORT INFORMATION
  Report Type: 
  Country: None (occurrence: None)
  Receive Date: 20111130
  Receipt Date: 20110920
  Transmission Date: 20120403
  Serious: No
  Sender: FDA-Public Use
  Company Number: US-BRISTOL-MYERS SQUIBB COMPANY-16080632

PATIENT

DRUGS (2)
  1. METFORMIN HCL [Concomitant]
  2. KOMBIGLYZE XR [Suspect]

REACTIONS (1)
  - HEADACHE [None]
